FAERS Safety Report 4472467-4 (Version None)
Quarter: 2004Q4

REPORT INFORMATION
  Report Type: 
  Country: None (occurrence: None)
  Receive Date: 20041007
  Receipt Date: 20040930
  Transmission Date: 20050328
  Serious: Yes (Other)
  Sender: FDA-Public Use
  Company Number: 2004236580US

PATIENT
  Age: 89 Year
  Sex: Female
  Weight: 61.2 kg

DRUGS (7)
  1. BEXTRA [Suspect]
     Indication: ARTHRITIS
     Dosage: 10 MG, QD, ORAL
     Route: 048
     Dates: start: 20040101, end: 20040701
  2. CELEBREX [Suspect]
     Indication: ARTHRITIS
     Dosage: ORAL
     Route: 048
     Dates: start: 20040701
  3. ACETYLSALICYLIC ACID [Concomitant]
  4. COREG [Concomitant]
  5. LOTENSIN [Concomitant]
  6. PREVACID [Concomitant]
  7. ZOCOR [Concomitant]

REACTIONS (3)
  - DIZZINESS [None]
  - FALL [None]
  - HEAD INJURY [None]
